FAERS Safety Report 6596874-9 (Version None)
Quarter: 2010Q1

REPORT INFORMATION
  Report Type: 
  Country: None (occurrence: None)
  Receive Date: 20100222
  Receipt Date: 20100222
  Transmission Date: 20100710
  Serious: Yes (Life-Threatening, Hospitalization)
  Sender: FDA-Public Use
  Company Number: None

PATIENT
  Age: 32 Year
  Sex: Male
  Weight: 68.9467 kg

DRUGS (4)
  1. ACETAMINOPHEN W/ PROPOXYPHENE HCL [Suspect]
     Indication: HEADACHE
     Dosage: 1 TABLET EVERY 6-8 HRS. PO
     Route: 048
     Dates: start: 20090314, end: 20090314
  2. ACETAMINOPHEN W/ PROPOXYPHENE HCL [Suspect]
     Indication: SINUSITIS
     Dosage: 1 TABLET EVERY 6-8 HRS. PO
     Route: 048
     Dates: start: 20090314, end: 20090314
  3. AVELOX [Suspect]
  4. NASACORT AQ [Suspect]

REACTIONS (3)
  - CARDIAC ARREST [None]
  - DIZZINESS [None]
  - LOSS OF CONSCIOUSNESS [None]
